FAERS Safety Report 12246846 (Version 1)
Quarter: 2016Q2

REPORT INFORMATION
  Report Type: Spontaneous
  Country: SG (occurrence: SG)
  Receive Date: 20160407
  Receipt Date: 20160407
  Transmission Date: 20160815
  Serious: Yes (Death)
  Sender: FDA-Public Use
  Company Number: SG-009507513-1604SGP003451

PATIENT
  Age: 62 Year
  Sex: Male

DRUGS (1)
  1. TEDIZOLID PHOSPHATE [Suspect]
     Active Substance: TEDIZOLID PHOSPHATE
     Indication: SKIN BACTERIAL INFECTION
     Dosage: 1 DF, QD
     Route: 048

REACTIONS (2)
  - Multiple-drug resistance [Fatal]
  - Malaise [Unknown]
